FAERS Safety Report 5047406-8 (Version None)
Quarter: 2006Q3

REPORT INFORMATION
  Report Type: 
  Country: None (occurrence: None)
  Receive Date: 20060703
  Receipt Date: 20060615
  Transmission Date: 20061208
  Serious: Yes (Other)
  Sender: FDA-Public Use
  Company Number: 033-14

PATIENT
  Age: 76 Year
  Sex: Female

DRUGS (5)
  1. TEVETEN HCT [Suspect]
     Dates: start: 20060524
  2. ACETYLSALICYLIC ACID SRT [Concomitant]
  3. ALTACE [Concomitant]
  4. ATIVAN [Concomitant]
  5. BISOPROLOL FUMARATE [Concomitant]

REACTIONS (2)
  - BLOOD PRESSURE INCREASED [None]
  - PAIN IN EXTREMITY [None]
